FAERS Safety Report 7677930-0 (Version None)
Quarter: 2011Q3

REPORT INFORMATION
  Report Type: 
  Country: None (occurrence: None)
  Receive Date: 20110811
  Receipt Date: 20110711
  Transmission Date: 20111222
  Serious: Yes (Hospitalization, Other)
  Sender: FDA-Public Use
  Company Number: CN-ASTRAZENECA-2011SE35842

PATIENT
  Age: 60 Year
  Sex: Male
  Weight: 58 kg

DRUGS (5)
  1. OMEPRAZOLE [Suspect]
     Route: 048
     Dates: start: 20110501
  2. OMEPRAZOLE [Suspect]
     Indication: GASTRIC ULCER
     Route: 048
     Dates: start: 19800101, end: 19810101
  3. OMEPRAZOLE [Suspect]
     Route: 048
     Dates: start: 20110601
  4. OMEPRAZOLE [Suspect]
     Route: 048
     Dates: start: 20110701
  5. NEXIUM [Suspect]
     Route: 048
     Dates: start: 20110613

REACTIONS (10)
  - OESOPHAGEAL DISCOMFORT [None]
  - AGITATION [None]
  - AGGRESSION [None]
  - HOSPITALISATION [None]
  - HEADACHE [None]
  - ILLUSION [None]
  - DUODENAL ULCER [None]
  - FEELING ABNORMAL [None]
  - URTICARIA [None]
  - GASTROOESOPHAGEAL REFLUX DISEASE [None]
